FAERS Safety Report 17859099 (Version 1)
Quarter: 2020Q2

REPORT INFORMATION
  Report Type: Spontaneous
  Country: CO (occurrence: CO)
  Receive Date: 20200604
  Receipt Date: 20200604
  Transmission Date: 20200714
  Serious: Yes (Other)
  Sender: FDA-Public Use
  Company Number: CO-BAYER-2020-104148

PATIENT
  Age: 20 Year
  Sex: Female

DRUGS (1)
  1. JADELLE [Suspect]
     Active Substance: LEVONORGESTREL
     Indication: CONTRACEPTION
     Dosage: CONTINUOUS-RELEASE
     Route: 059
     Dates: start: 20200207

REACTIONS (5)
  - Drug ineffective [None]
  - Amenorrhoea [Not Recovered/Not Resolved]
  - Maternal exposure during breast feeding [Not Recovered/Not Resolved]
  - Pregnancy with implant contraceptive [Not Recovered/Not Resolved]
  - Lactation disorder [None]

NARRATIVE: CASE EVENT DATE: 20200207
